FAERS Safety Report 5321779-0 (Version None)
Quarter: 2007Q2

REPORT INFORMATION
  Report Type: 
  Country: None (occurrence: None)
  Receive Date: 20070507
  Receipt Date: 20070424
  Transmission Date: 20071010
  Serious: Yes (Other)
  Sender: FDA-Public Use
  Company Number: 2007VX001246

PATIENT
  Age: 75 Year
  Sex: Male
  Weight: 90.7194 kg

DRUGS (1)
  1. EFUDEX [Suspect]
     Indication: ACTINIC KERATOSIS
     Dosage: TDER
     Route: 062

REACTIONS (3)
  - APPLICATION SITE ERYTHEMA [None]
  - APPLICATION SITE EXFOLIATION [None]
  - FACIAL PALSY [None]
